FAERS Safety Report 9418399 (Version 1)
Quarter: 2013Q3

REPORT INFORMATION
  Report Type: Spontaneous
  Country: US (occurrence: US)
  Receive Date: 20130725
  Receipt Date: 20130725
  Transmission Date: 20140515
  Serious: No
  Sender: FDA-Public Use
  Company Number: US-BIOGENIDEC-2013BI022592

PATIENT
  Sex: Female

DRUGS (1)
  1. AVONEX [Suspect]
     Indication: MULTIPLE SCLEROSIS
     Route: 030
     Dates: start: 20120119

REACTIONS (29)
  - Injection site pain [Not Recovered/Not Resolved]
  - Anxiety [Not Recovered/Not Resolved]
  - Pain [Recovered/Resolved]
  - Injection site reaction [Not Recovered/Not Resolved]
  - Malaise [Recovered/Resolved]
  - Insomnia [Not Recovered/Not Resolved]
  - Arthritis [Not Recovered/Not Resolved]
  - Memory impairment [Not Recovered/Not Resolved]
  - Drug intolerance [Not Recovered/Not Resolved]
  - Drug dose omission [Unknown]
  - Injection site haemorrhage [Recovered/Resolved]
  - Fear [Recovered/Resolved]
  - Stress [Recovered/Resolved]
  - General symptom [Not Recovered/Not Resolved]
  - Joint injury [Not Recovered/Not Resolved]
  - Joint effusion [Not Recovered/Not Resolved]
  - Joint hyperextension [Not Recovered/Not Resolved]
  - Sopor [Recovered/Resolved]
  - Fear of injection [Not Recovered/Not Resolved]
  - Loss of consciousness [Recovered/Resolved]
  - Venous injury [Recovered/Resolved]
  - Poor venous access [Not Recovered/Not Resolved]
  - Blindness transient [Not Recovered/Not Resolved]
  - Nervous system disorder [Not Recovered/Not Resolved]
  - Hearing impaired [Not Recovered/Not Resolved]
  - Mobility decreased [Not Recovered/Not Resolved]
  - Gait disturbance [Not Recovered/Not Resolved]
  - Cold sweat [Not Recovered/Not Resolved]
  - Vomiting [Not Recovered/Not Resolved]
